FAERS Safety Report 20807646 (Version 1)
Quarter: 2022Q2

REPORT INFORMATION
  Report Type: Spontaneous
  Country: RU (occurrence: RU)
  Receive Date: 20220510
  Receipt Date: 20220510
  Transmission Date: 20220721
  Serious: Yes (Other)
  Sender: FDA-Public Use
  Company Number: None

PATIENT
  Age: 45 Year
  Sex: Female
  Weight: 160 kg

DRUGS (1)
  1. GADOBUTROL [Suspect]
     Active Substance: GADOBUTROL
     Indication: Pancreatic cyst
     Dosage: UNK
     Route: 040
     Dates: start: 20220422, end: 20220422

REACTIONS (8)
  - Asthenia [Recovered/Resolved]
  - Burning sensation [Recovered/Resolved]
  - Tremor [Recovered/Resolved]
  - Lip swelling [Recovered/Resolved]
  - Ear swelling [Recovered/Resolved]
  - Hyperaemia [Recovered/Resolved]
  - Rash [Recovered/Resolved]
  - Hypotension [Recovered/Resolved]

NARRATIVE: CASE EVENT DATE: 20220422
